FAERS Safety Report 23612240 (Version 2)
Quarter: 2024Q2

REPORT INFORMATION
  Report Type: Spontaneous
  Country: US (occurrence: None)
  Receive Date: 20240308
  Receipt Date: 20240406
  Transmission Date: 20240716
  Serious: No
  Sender: FDA-Public Use
  Company Number: 2024A045726

PATIENT
  Age: 77 Year
  Sex: Female

DRUGS (2)
  1. FASENRA [Suspect]
     Active Substance: BENRALIZUMAB
     Indication: Asthma
     Dosage: 30MG/ML EVERY FOUR WEEKS
     Route: 058
     Dates: start: 202312, end: 20240214
  2. FASENRA [Suspect]
     Active Substance: BENRALIZUMAB
     Indication: Urinary hesitation
     Dosage: 30MG/ML EVERY FOUR WEEKS
     Route: 058
     Dates: start: 202312, end: 20240214

REACTIONS (1)
  - Brain fog [Not Recovered/Not Resolved]

NARRATIVE: CASE EVENT DATE: 20240214
